FAERS Safety Report 21002977 (Version 1)
Quarter: 2022Q2

REPORT INFORMATION
  Report Type: Spontaneous
  Country: SE (occurrence: SE)
  Receive Date: 20220624
  Receipt Date: 20220624
  Transmission Date: 20220720
  Serious: Yes (Death, Life-Threatening, Hospitalization, Other)
  Sender: FDA-Public Use
  Company Number: None

PATIENT
  Age: 84 Year
  Sex: Male

DRUGS (1)
  1. ERLEADA [Suspect]
     Active Substance: APALUTAMIDE
     Indication: Prostate cancer metastatic
     Dosage: 240 MG X1
     Route: 048
     Dates: start: 20220210, end: 20220403

REACTIONS (4)
  - Neutropenia [Fatal]
  - Multiple organ dysfunction syndrome [Fatal]
  - Dermatitis exfoliative generalised [Fatal]
  - Septic shock [Fatal]

NARRATIVE: CASE EVENT DATE: 20220101
